FAERS Safety Report 9716321 (Version 3)
Quarter: 2013Q4

REPORT INFORMATION
  Report Type: Spontaneous
  Country: US (occurrence: US)
  Receive Date: 20131127
  Receipt Date: 20131206
  Transmission Date: 20140711
  Serious: Yes (Hospitalization)
  Sender: FDA-Public Use
  Company Number: US-PURDUE-USA-2013-0107871

PATIENT
  Age: 62 Year
  Sex: Female
  Weight: 72.56 kg

DRUGS (8)
  1. OXYCONTIN (NDA 22-272) [Suspect]
     Indication: PAIN
     Dosage: 40 MG, Q8H
     Route: 048
     Dates: start: 20130531
  2. NORCO [Concomitant]
     Indication: PRODUCT USED FOR UNKNOWN INDICATION
  3. SOMA [Concomitant]
     Indication: PRODUCT USED FOR UNKNOWN INDICATION
  4. METOPROLOL [Concomitant]
     Indication: PRODUCT USED FOR UNKNOWN INDICATION
  5. AMLODIPINE [Concomitant]
     Indication: PRODUCT USED FOR UNKNOWN INDICATION
  6. LEVOTHYROXINE [Concomitant]
     Indication: PRODUCT USED FOR UNKNOWN INDICATION
  7. PROTONIX [Concomitant]
     Indication: PRODUCT USED FOR UNKNOWN INDICATION
  8. OPIUM TINCTURE [Concomitant]
     Indication: PRODUCT USED FOR UNKNOWN INDICATION

REACTIONS (10)
  - Investigation [Unknown]
  - Loss of consciousness [Recovered/Resolved]
  - Fall [Recovered/Resolved]
  - Chest discomfort [Unknown]
  - Heart rate increased [Unknown]
  - Contusion [Unknown]
  - Gait disturbance [Unknown]
  - Dyspnoea [Unknown]
  - Blood pressure decreased [Not Recovered/Not Resolved]
  - Malaise [Unknown]
